FAERS Safety Report 5429071-0 (Version None)
Quarter: 2007Q3

REPORT INFORMATION
  Report Type: 
  Country: None (occurrence: None)
  Receive Date: 20070827
  Receipt Date: 20070810
  Transmission Date: 20080115
  Serious: Yes (Hospitalization)
  Sender: FDA-Public Use
  Company Number: 8026028

PATIENT
  Age: 53 Year
  Sex: Female

DRUGS (8)
  1. KEPPRA [Suspect]
     Indication: EPILEPSY
     Dosage: 1000 MG 2/D PO
     Route: 048
     Dates: start: 20050825
  2. ZYPREXA [Concomitant]
  3. LAMICTAL [Concomitant]
  4. PRIMIDONE [Concomitant]
  5. TAVOR [Concomitant]
  6. TRIAMTEREN [Concomitant]
  7. HYDROCHLOROTHIAZIDE [Concomitant]
  8. PANTOPRAZOLE SODIUM [Concomitant]

REACTIONS (7)
  - DYSKINESIA [None]
  - GAIT DISTURBANCE [None]
  - HYPERTONIA [None]
  - MUSCLE RIGIDITY [None]
  - MUSCLE TWITCHING [None]
  - SOMNOLENCE [None]
  - TREMOR [None]
